FAERS Safety Report 5786561-9 (Version None)
Quarter: 2008Q2

REPORT INFORMATION
  Report Type: 
  Country: None (occurrence: None)
  Receive Date: 20080624
  Receipt Date: 20070810
  Transmission Date: 20081010
  Serious: No
  Sender: FDA-Public Use
  Company Number: US-ASTRAZENECA-2007UW19461

PATIENT
  Age: 81 Year
  Sex: Female
  Weight: 56.2 kg

DRUGS (19)
  1. PULMICORT FLEXHALER [Suspect]
     Indication: ASTHMA
     Route: 055
  2. PULMICORT FLEXHALER [Suspect]
     Indication: COUGH
     Route: 055
  3. PULMICORT FLEXHALER [Suspect]
     Route: 055
  4. PULMICORT FLEXHALER [Suspect]
     Route: 055
  5. METFORMIN HCL [Concomitant]
  6. COMBIVENT [Concomitant]
  7. THEOPHYLLINE [Concomitant]
  8. SYNTHROID [Concomitant]
  9. PEPCID [Concomitant]
  10. DIGOTEK [Concomitant]
  11. ALLEGRA [Concomitant]
  12. SINGULAIR [Concomitant]
  13. DILTIAZEM [Concomitant]
  14. PLAVIX [Concomitant]
  15. LIPITOR [Concomitant]
  16. NIASPAN [Concomitant]
  17. ASPIRIN [Concomitant]
  18. XALATAN [Concomitant]
  19. NITROGLYCERIN [Concomitant]

REACTIONS (1)
  - GLOSSITIS [None]
